FAERS Safety Report 9537066 (Version 1)
Quarter: 2013Q3

REPORT INFORMATION
  Report Type: Spontaneous
  Country: US (occurrence: US)
  Receive Date: 20130919
  Receipt Date: 20130919
  Transmission Date: 20140515
  Serious: No
  Sender: FDA-Public Use
  Company Number: US-PFIZER INC-2013268153

PATIENT
  Sex: Female

DRUGS (3)
  1. RELPAX [Suspect]
     Indication: MUSCULOSKELETAL PAIN
  2. RELPAX [Suspect]
     Indication: NECK PAIN
  3. RELPAX [Suspect]
     Indication: PAIN
     Dosage: 40 MG, (1/2 A PILL) AS NEEDED

REACTIONS (2)
  - Off label use [Unknown]
  - Therapeutic response unexpected [Unknown]
